FAERS Safety Report 23121685 (Version 1)
Quarter: 2023Q4

REPORT INFORMATION
  Report Type: Spontaneous
  Country: CA (occurrence: CA)
  Receive Date: 20231029
  Receipt Date: 20231029
  Transmission Date: 20240110
  Serious: Yes (Other)
  Sender: FDA-Public Use
  Company Number: CA-CELLTRION INC.-2022CA006615

PATIENT

DRUGS (18)
  1. INFLECTRA [Suspect]
     Active Substance: INFLIXIMAB-DYYB
     Indication: Colitis ulcerative
     Dosage: 5 MG/KG, 0, 2 AND 6, THEN EVERY 8 WEEKS (INDUCTION DOSES AT WEEK 0, 2 AND 6, THEN EVERY 8 WEEKS)
     Route: 042
     Dates: start: 20220301, end: 20221012
  2. INFLECTRA [Suspect]
     Active Substance: INFLIXIMAB-DYYB
     Dosage: 5 MG/KG, 0, 2 AND 6, THEN EVERY 8 WEEKS
     Route: 042
     Dates: start: 20220315
  3. INFLECTRA [Suspect]
     Active Substance: INFLIXIMAB-DYYB
     Dosage: 5 MG/KG, 0, 2 AND 6, THEN EVERY 8 WEEKS
     Route: 042
     Dates: start: 20220412
  4. INFLECTRA [Suspect]
     Active Substance: INFLIXIMAB-DYYB
     Dosage: 5 MG/KG, 0, 2 AND 6, THEN EVERY 8 WEEKS
     Route: 042
     Dates: start: 20220610
  5. INFLECTRA [Suspect]
     Active Substance: INFLIXIMAB-DYYB
     Dosage: 5 MG/KG, 0, 2 AND 6, THEN EVERY 8 WEEKS
     Route: 042
     Dates: start: 20220805
  6. INFLECTRA [Suspect]
     Active Substance: INFLIXIMAB-DYYB
     Dosage: 5 MG/KG, 0, 2 AND 6, THEN EVERY 8 WEEKS
     Route: 042
     Dates: start: 20221012
  7. INFLECTRA [Suspect]
     Active Substance: INFLIXIMAB-DYYB
     Dosage: 10 MG/KG, START DOSE 4 WEEKS AFTER LAST INFUSION THEN CONTINUE EVERY 8 WEEKS
     Route: 042
     Dates: start: 20221117
  8. INFLECTRA [Suspect]
     Active Substance: INFLIXIMAB-DYYB
     Dosage: 10 MG/KG, START DOSE 4 WEEKS AFTER LAST INFUSION THEN CONTINUE EVERY 8 WEEKS
     Route: 042
     Dates: start: 20221117
  9. INFLECTRA [Suspect]
     Active Substance: INFLIXIMAB-DYYB
     Dosage: 10 MG/KG, START DOSE 4 WEEKS AFTER LAST INFUSION THEN CONTINUE EVERY 8 WEEKS
     Route: 042
     Dates: start: 20230112
  10. INFLECTRA [Suspect]
     Active Substance: INFLIXIMAB-DYYB
     Dosage: 1990 MG (10MG/KG) EVERY 8 WEEKS
     Route: 042
     Dates: start: 20230308
  11. INFLECTRA [Suspect]
     Active Substance: INFLIXIMAB-DYYB
     Dosage: 1940 MG (10 MG/KG) EVERY 8 WEEKS
     Route: 042
     Dates: start: 20230503
  12. INFLECTRA [Suspect]
     Active Substance: INFLIXIMAB-DYYB
     Dosage: 10 MG/KG, START DOSE 4 WEEKS AFTER LAST INFUSION THEN CONTINUE EVERY 8 WEEKS
     Route: 042
     Dates: start: 20230824
  13. INFLECTRA [Suspect]
     Active Substance: INFLIXIMAB-DYYB
     Dosage: 10 MG/KG, START DOSE 4 WEEKS AFTER LAST INFUSION THEN CONTINUE EVERY 8 WEEKS
     Route: 042
     Dates: start: 20230824
  14. INFLECTRA [Suspect]
     Active Substance: INFLIXIMAB-DYYB
     Dosage: 1920 MG, 8 WEEKS
     Route: 042
     Dates: start: 20231019
  15. BUDESONIDE [Concomitant]
     Active Substance: BUDESONIDE
     Dosage: UNK
  16. TRAZODONE [Concomitant]
     Active Substance: TRAZODONE HYDROCHLORIDE
     Dosage: 1 DF, DOSAGE NOT AVAILABLE
     Route: 064
  17. TRAZODONE [Concomitant]
     Active Substance: TRAZODONE HYDROCHLORIDE
     Dosage: 1 DF, DOSAGE NOT AVAILABLE
     Route: 065
  18. TRAZODONE [Concomitant]
     Active Substance: TRAZODONE HYDROCHLORIDE
     Dosage: 1 DF, DOSAGE NOT AVAILABLE
     Route: 065

REACTIONS (16)
  - Blood pressure increased [Not Recovered/Not Resolved]
  - Dry skin [Unknown]
  - Injection site discomfort [Recovered/Resolved]
  - Weight increased [Unknown]
  - Hypertension [Unknown]
  - COVID-19 [Not Recovered/Not Resolved]
  - Abdominal discomfort [Unknown]
  - Pain [Recovered/Resolved]
  - Dizziness [Recovered/Resolved]
  - Nasopharyngitis [Recovered/Resolved]
  - Anal fissure [Not Recovered/Not Resolved]
  - Skin lesion [Recovered/Resolved]
  - Poor venous access [Unknown]
  - Off label use [Unknown]
  - Off label use [Unknown]
  - Inappropriate schedule of product administration [Unknown]

NARRATIVE: CASE EVENT DATE: 20220315
